FAERS Safety Report 7867235-7 (Version None)
Quarter: 2011Q4

REPORT INFORMATION
  Report Type: 
  Country: None (occurrence: None)
  Receive Date: 20111028
  Receipt Date: 20111026
  Transmission Date: 20120403
  Serious: Yes (Life-Threatening)
  Sender: FDA-Public Use
  Company Number: DE-GLAXOSMITHKLINE-B0758702A

PATIENT
  Sex: Female
  Weight: 67 kg

DRUGS (3)
  1. LAPATINIB [Suspect]
     Indication: BREAST CANCER
     Dosage: 1250MG PER DAY
     Route: 048
     Dates: start: 20110505
  2. PACLITAXEL [Suspect]
     Indication: BREAST CANCER
     Dosage: 299MG EVERY 3 WEEKS
     Route: 042
     Dates: start: 20110505
  3. DOXORUBICIN HCL [Suspect]
     Indication: BREAST CANCER
     Dosage: 103MG EVERY 3 WEEKS
     Route: 042
     Dates: start: 20110505

REACTIONS (2)
  - WHITE BLOOD CELL COUNT DECREASED [None]
  - NEUTROPHIL COUNT DECREASED [None]
